FAERS Safety Report 16353919 (Version 2)
Quarter: 2019Q2

REPORT INFORMATION
  Report Type: Report from Study
  Country: FR (occurrence: FR)
  Receive Date: 20190524
  Receipt Date: 20190618
  Transmission Date: 20190711
  Serious: Yes (Hospitalization)
  Sender: FDA-Public Use
  Company Number: FR-ROCHE-2287697

PATIENT
  Age: 83 Year
  Sex: Female
  Weight: 61.2 kg

DRUGS (3)
  1. VENETOCLAX. [Suspect]
     Active Substance: VENETOCLAX
     Indication: LYMPHOMA
     Dosage: MOST RECENT DOSE: 07/MAY/2019
     Route: 065
     Dates: start: 20190404
  2. OBINUTUZUMAB. [Suspect]
     Active Substance: OBINUTUZUMAB
     Indication: LYMPHOMA
     Dosage: MOST RECENT DOSE PRIOR TO EVENT ONSET ON 12/MAR/2019
     Route: 065
     Dates: start: 20190312
  3. ATEZOLIZUMAB. [Suspect]
     Active Substance: ATEZOLIZUMAB
     Indication: LYMPHOMA
     Dosage: MOST RECENT DOSE PRIOR TO EVENT ONSET ON 12/MAR/2019
     Route: 065
     Dates: start: 20190312

REACTIONS (1)
  - Staphylococcal sepsis [Recovered/Resolved with Sequelae]

NARRATIVE: CASE EVENT DATE: 20190313
